FAERS Safety Report 17548228 (Version 2)
Quarter: 2020Q1

REPORT INFORMATION
  Report Type: Spontaneous
  Country: PL (occurrence: PL)
  Receive Date: 20200317
  Receipt Date: 20200319
  Transmission Date: 20200409
  Serious: Yes (Life-Threatening, Hospitalization, Other)
  Sender: FDA-Public Use
  Company Number: PL-AUROBINDO-AUR-APL-2020-011680

PATIENT
  Age: 65 Year
  Sex: Female

DRUGS (3)
  1. CEFUROXIME FILM-COATED TABLET [Suspect]
     Active Substance: CEFUROXIME
     Indication: ANTIBIOTIC THERAPY
     Dosage: 250 MILLIGRAM (GIVEN SEVERAL YEARS PRIOR TO THE CURRENT HOSPITALISATION AT AN UNSPECIFIED DOSAGE)
     Route: 048
     Dates: start: 201803
  2. CEFAZOLIN [Suspect]
     Active Substance: CEFAZOLIN
     Indication: SKIN TEST
     Dosage: INTRADERMAL ADMINISTRATION OF 1:10000 DILUTION OF CEFAZOLIN
     Route: 023
  3. CEFUROXIME. [Suspect]
     Active Substance: CEFUROXIME
     Indication: ANTIBIOTIC THERAPY
     Dosage: UNK
     Route: 065

REACTIONS (10)
  - Dyspnoea [Recovered/Resolved]
  - Hypersensitivity [Recovered/Resolved]
  - Anaphylactic shock [Unknown]
  - Abdominal pain [Recovered/Resolved]
  - Anal incontinence [Recovered/Resolved]
  - Tachycardia [Recovered/Resolved]
  - Anaphylactic reaction [Recovered/Resolved]
  - Accidental exposure to product [Unknown]
  - Flushing [Recovered/Resolved]
  - Therapeutic product cross-reactivity [Unknown]

NARRATIVE: CASE EVENT DATE: 201803
